FAERS Safety Report 7159975-2 (Version None)
Quarter: 2010Q4

REPORT INFORMATION
  Report Type: 
  Country: None (occurrence: None)
  Receive Date: 20101214
  Receipt Date: 20101201
  Transmission Date: 20110411
  Serious: Yes (Hospitalization)
  Sender: FDA-Public Use
  Company Number: US-VIROPHARMA INCORPORATED-20100416CINRY1453

PATIENT
  Sex: Female
  Weight: 63.106 kg

DRUGS (6)
  1. CINRYZE [Suspect]
     Indication: HEREDITARY ANGIOEDEMA
     Dates: start: 20100323, end: 20100101
  2. CINRYZE [Suspect]
     Dates: start: 20100101
  3. MYLANTA [Concomitant]
     Indication: DYSPEPSIA
     Dates: start: 20100323
  4. LEVOTHYROXINE [Concomitant]
     Indication: HYPOTHYROIDISM
     Dates: start: 20100323
  5. TYLENOL (CAPLET) [Concomitant]
     Indication: PAIN
     Dates: start: 20100323
  6. PEPCID [Concomitant]
     Indication: DYSPEPSIA
     Dates: start: 20100323

REACTIONS (5)
  - ANGIOEDEMA [None]
  - HEREDITARY ANGIOEDEMA [None]
  - INAPPROPRIATE SCHEDULE OF DRUG ADMINISTRATION [None]
  - PRE-ECLAMPSIA [None]
  - PREGNANCY [None]
